FAERS Safety Report 4301197-4 (Version None)
Quarter: 2004Q1

REPORT INFORMATION
  Report Type: 
  Country: None (occurrence: None)
  Receive Date: 20040218
  Receipt Date: 20031202
  Transmission Date: 20041129
  Serious: No
  Sender: FDA-Public Use
  Company Number: 2003-12-0149

PATIENT
  Age: 52 Year
  Sex: Male
  Weight: 88.905 kg

DRUGS (2)
  1. PEG-INTRON [Suspect]
     Indication: HEPATITIS C
     Dosage: 150 MCG QW
     Route: 058
     Dates: start: 20021024, end: 20030703
  2. REBETOL [Suspect]
     Indication: HEPATITIS C
     Dosage: 1200 MG QD
     Route: 048
     Dates: start: 20021024, end: 20030703

REACTIONS (2)
  - DRUG INEFFECTIVE [None]
  - UNEXPECTED THERAPEUTIC DRUG EFFECT [None]
